FAERS Safety Report 6669393-9 (Version None)
Quarter: 2010Q2

REPORT INFORMATION
  Report Type: 
  Country: None (occurrence: None)
  Receive Date: 20100406
  Receipt Date: 20100330
  Transmission Date: 20101027
  Serious: Yes (Death)
  Sender: FDA-Public Use
  Company Number: B0643950A

PATIENT
  Age: 28 Week

DRUGS (2)
  1. COMBIVIR [Suspect]
     Indication: PROPHYLAXIS AGAINST HIV INFECTION
     Dosage: 2U PER DAY
     Dates: start: 20090819, end: 20090913
  2. KALETRA [Suspect]
     Indication: PROPHYLAXIS AGAINST HIV INFECTION
     Dosage: 4U PER DAY
     Dates: start: 20090819, end: 20090913

REACTIONS (1)
  - INTRA-UTERINE DEATH [None]
